FAERS Safety Report 4860460-9 (Version None)
Quarter: 2005Q4

REPORT INFORMATION
  Report Type: 
  Country: None (occurrence: None)
  Receive Date: 20051219
  Receipt Date: 20051209
  Transmission Date: 20060501
  Serious: Yes (Other)
  Sender: FDA-Public Use
  Company Number: CA-BRISTOL-MYERS SQUIBB COMPANY-13217682

PATIENT
  Age: 84 Year
  Sex: Male

DRUGS (5)
  1. TEQUIN [Suspect]
     Route: 048
  2. DIABETA [Concomitant]
  3. HYDROCHLOROTHIAZIDE [Concomitant]
  4. LISINOPRIL [Concomitant]
  5. METFORMIN HCL [Concomitant]

REACTIONS (1)
  - HYPOGLYCAEMIA [None]
